FAERS Safety Report 18270895 (Version 9)
Quarter: 2021Q1

REPORT INFORMATION
  Report Type: Report from Study
  Country: CA (occurrence: CA)
  Receive Date: 20200915
  Receipt Date: 20210315
  Transmission Date: 20210419
  Serious: Yes (Other)
  Sender: FDA-Public Use
  Company Number: CA-NALPROPION PHARMACEUTICALS INC.-2020-011116

PATIENT

DRUGS (7)
  1. CONTRAVE [Suspect]
     Active Substance: BUPROPION HYDROCHLORIDE\NALTREXONE HYDROCHLORIDE
     Dosage: 90/8 MG: WEEK 2: 2 TABLETS IN MORNING AND 2 TABLET IN EVENING APPROXIMATELY 19/JAN/2021
     Route: 048
     Dates: start: 202101, end: 202101
  2. CONTRAVE [Suspect]
     Active Substance: BUPROPION HYDROCHLORIDE\NALTREXONE HYDROCHLORIDE
     Dosage: 90/8 MG: WEEK 3: 2 TABLETS IN MORNING AND 1 TABLET IN EVENING APPROXIMATELY 26/JAN/2021
     Route: 048
     Dates: start: 202101, end: 20210218
  3. CONTRAVE [Suspect]
     Active Substance: BUPROPION HYDROCHLORIDE\NALTREXONE HYDROCHLORIDE
     Dosage: 90/8 MG: 2 TABLETS IN MORNING AND 1 TABLET IN EVENING (PATIENT IN THIRD MONTH TAKING 3 TABS/DAY)
     Route: 048
     Dates: start: 20200914
  4. CONTRAVE [Suspect]
     Active Substance: BUPROPION HYDROCHLORIDE\NALTREXONE HYDROCHLORIDE
     Dosage: 90/8 MG WEEK 2: 1 TABLET IN MORNING AND 1 TABLET IN EVENING
     Route: 048
     Dates: start: 20200824, end: 202008
  5. CONTRAVE [Suspect]
     Active Substance: BUPROPION HYDROCHLORIDE\NALTREXONE HYDROCHLORIDE
     Dosage: 90/8 MG WEEK 3: 2 TABLETS IN MORNING AND 1 TABLET IN EVENING
     Route: 048
     Dates: start: 20200831, end: 2020
  6. CONTRAVE [Suspect]
     Active Substance: BUPROPION HYDROCHLORIDE\NALTREXONE HYDROCHLORIDE
     Indication: WEIGHT CONTROL
     Dosage: 90/8 MG WEEK 1: 1 TABLET IN MORNING
     Route: 048
     Dates: start: 20200817, end: 202008
  7. CONTRAVE [Suspect]
     Active Substance: BUPROPION HYDROCHLORIDE\NALTREXONE HYDROCHLORIDE
     Dosage: 90/8 MG: 2 TABLETS IN MORNING AND 2 TABLETS IN EVENING
     Route: 048
     Dates: start: 20200907, end: 202009

REACTIONS (13)
  - Head injury [Recovered/Resolved]
  - Fatigue [Unknown]
  - Drug intolerance [Unknown]
  - Wound haemorrhage [Recovered/Resolved]
  - Weight increased [Unknown]
  - Fall [Recovered/Resolved]
  - Decreased appetite [Unknown]
  - Food craving [Unknown]
  - Nausea [Recovered/Resolved]
  - Depressed mood [Unknown]
  - Feeling abnormal [Unknown]
  - Blood pressure diastolic increased [Recovering/Resolving]
  - Therapeutic product effect incomplete [Unknown]

NARRATIVE: CASE EVENT DATE: 2020
